FAERS Safety Report 16178154 (Version 1)
Quarter: 2019Q2

REPORT INFORMATION
  Report Type: Spontaneous
  Country: GR (occurrence: GR)
  Receive Date: 20190410
  Receipt Date: 20190410
  Transmission Date: 20190711
  Serious: Yes (Other)
  Sender: FDA-Public Use
  Company Number: GR-TEVA-2019-GR-1036690

PATIENT
  Sex: Female

DRUGS (2)
  1. METHOTREXATE. [Suspect]
     Active Substance: METHOTREXATE
     Indication: ABORTION OF ECTOPIC PREGNANCY
     Route: 012
  2. POTASSIUM CHLORIDE. [Suspect]
     Active Substance: POTASSIUM CHLORIDE
     Indication: FOETICIDE
     Route: 016

REACTIONS (3)
  - Maternal exposure during pregnancy [Unknown]
  - Abortion of ectopic pregnancy [Unknown]
  - Product use in unapproved indication [Unknown]
